FAERS Safety Report 10083551 (Version 1)
Quarter: 2014Q2

REPORT INFORMATION
  Report Type: Spontaneous
  Country: US (occurrence: None)
  Receive Date: 20140416
  Receipt Date: 20140416
  Transmission Date: 20141212
  Serious: Yes (Hospitalization)
  Sender: FDA-Public Use
  Company Number: None

PATIENT
  Age: 14 Year
  Sex: Female
  Weight: 62.4 kg

DRUGS (1)
  1. METHOTREXATE [Suspect]
     Dates: end: 20140401

REACTIONS (2)
  - Stomatitis [None]
  - Oral pain [None]
